FAERS Safety Report 5899349-5 (Version None)
Quarter: 2008Q3

REPORT INFORMATION
  Report Type: 
  Country: None (occurrence: None)
  Receive Date: 20080924
  Receipt Date: 20080915
  Transmission Date: 20090109
  Serious: Yes (Hospitalization)
  Sender: FDA-Public Use
  Company Number: 2008BI020778

PATIENT
  Age: 46 Year
  Sex: Male
  Weight: 125.1928 kg

DRUGS (2)
  1. TYSABRI [Suspect]
     Indication: MULTIPLE SCLEROSIS
     Dosage: 300 MG; QM; IV
     Route: 042
     Dates: start: 20071023, end: 20080810
  2. BACLOFEN [Concomitant]

REACTIONS (10)
  - ABDOMINAL PAIN UPPER [None]
  - BLOOD GLUCOSE INCREASED [None]
  - BLOOD PRESSURE INCREASED [None]
  - DIZZINESS [None]
  - HAEMATOCRIT DECREASED [None]
  - HAEMOPTYSIS [None]
  - LYMPHOCYTE COUNT DECREASED [None]
  - PNEUMONIA [None]
  - PULMONARY EMBOLISM [None]
  - PULMONARY INFARCTION [None]
